FAERS Safety Report 19485553 (Version 3)
Quarter: 2021Q3

REPORT INFORMATION
  Report Type: Spontaneous
  Country: JP (occurrence: JP)
  Receive Date: 20210702
  Receipt Date: 20210728
  Transmission Date: 20211014
  Serious: Yes (Hospitalization)
  Sender: FDA-Public Use
  Company Number: JP-ASTELLAS-2021JP012611

PATIENT
  Age: 8 Decade
  Sex: Female

DRUGS (2)
  1. METHOTREXATE. [Suspect]
     Active Substance: METHOTREXATE
     Indication: RHEUMATOID ARTHRITIS
     Dosage: UNK UNK, TWICE WEEKLY, FRIDAY AND SATURDAY
     Route: 048
  2. PROGRAF [Suspect]
     Active Substance: TACROLIMUS
     Indication: RHEUMATOID ARTHRITIS
     Dosage: 6 MG, ONCE WEEKLY, THURSDAY
     Route: 048

REACTIONS (3)
  - Off label use [Unknown]
  - Fracture [Recovering/Resolving]
  - Prescribed overdose [Unknown]
